FAERS Safety Report 7632758-2 (Version None)
Quarter: 2011Q3

REPORT INFORMATION
  Report Type: 
  Country: None (occurrence: None)
  Receive Date: 20110725
  Receipt Date: 20110114
  Transmission Date: 20111222
  Serious: Yes (Hospitalization, Other)
  Sender: FDA-Public Use
  Company Number: US-BRISTOL-MYERS SQUIBB COMPANY-15466477

PATIENT
  Sex: Female
  Weight: 109 kg

DRUGS (9)
  1. LOPRESSOR [Concomitant]
  2. COUMADIN [Suspect]
     Indication: ATRIAL FIBRILLATION
  3. GLUCOPHAGE [Concomitant]
  4. ZOLOFT [Concomitant]
  5. LOTENSIN [Concomitant]
  6. PLAVIX [Suspect]
     Dates: end: 20101201
  7. ASPIRIN [Concomitant]
  8. NORVASC [Concomitant]
  9. LEVAQUIN [Concomitant]

REACTIONS (3)
  - HAEMORRHAGE [None]
  - CEREBROVASCULAR ACCIDENT [None]
  - INTERNATIONAL NORMALISED RATIO FLUCTUATION [None]
